FAERS Safety Report 9059499 (Version 2)
Quarter: 2013Q1

REPORT INFORMATION
  Report Type: Report from Study
  Country: US (occurrence: US)
  Receive Date: 20130211
  Receipt Date: 20130214
  Transmission Date: 20140127
  Serious: Yes (Other)
  Sender: FDA-Public Use
  Company Number: US-ABBOTT-13P-163-1044625-00

PATIENT
  Age: 46 None
  Sex: Female
  Weight: 67.65 kg

DRUGS (5)
  1. HUMIRA [Suspect]
     Indication: UVEITIS
     Route: 058
     Dates: start: 201206, end: 201211
  2. HUMIRA [Suspect]
     Route: 058
     Dates: start: 201212
  3. ZANTAC [Concomitant]
     Indication: GASTROOESOPHAGEAL REFLUX DISEASE
  4. ZYRTEC [Concomitant]
     Indication: ASTHMA
  5. ZYRTEC [Concomitant]
     Indication: SEASONAL ALLERGY

REACTIONS (7)
  - Ovarian cyst [Recovered/Resolved]
  - Off label use [Recovered/Resolved]
  - Uterine cyst [Recovered/Resolved]
  - Carbohydrate antigen 125 increased [Unknown]
  - Uterine mass [Recovered/Resolved]
  - Mesothelioma [Recovered/Resolved]
  - Endometriosis [Recovered/Resolved]
